FAERS Safety Report 14568977 (Version 2)
Quarter: 2018Q1

REPORT INFORMATION
  Report Type: Report from Study
  Country: BG (occurrence: BG)
  Receive Date: 20180223
  Receipt Date: 20180302
  Transmission Date: 20180509
  Serious: Yes (Death, Hospitalization, Other)
  Sender: FDA-Public Use
  Company Number: PHHY2018BG019790

PATIENT
  Age: 82 Year
  Sex: Male
  Weight: 95 kg

DRUGS (1)
  1. ENTRESTO [Suspect]
     Active Substance: SACUBITRIL\VALSARTAN
     Indication: CARDIAC FAILURE
     Dosage: 1 DF(SACUBITRIL 24 MG/VALSARTAN 26 MG), BID
     Route: 048
     Dates: start: 20170624, end: 20180205

REACTIONS (11)
  - Bladder cancer [Unknown]
  - Cardiovascular insufficiency [Fatal]
  - Ureteric dilatation [Unknown]
  - Cardiac arrest [Fatal]
  - Ureteric stenosis [Unknown]
  - Platelet count decreased [Unknown]
  - Respiratory failure [Fatal]
  - Haematuria [Unknown]
  - Bradycardia [Fatal]
  - Blood creatinine increased [Unknown]
  - Bladder tamponade [Unknown]

NARRATIVE: CASE EVENT DATE: 20180130
